FAERS Safety Report 8189147-4 (Version None)
Quarter: 2012Q1

REPORT INFORMATION
  Report Type: 
  Country: None (occurrence: None)
  Receive Date: 20120306
  Receipt Date: 20120306
  Transmission Date: 20120608
  Serious: No
  Sender: FDA-Public Use
  Company Number: None

PATIENT
  Age: 65 Year
  Sex: Female
  Weight: 85.7298 kg

DRUGS (4)
  1. LIPITOR [Suspect]
     Indication: BLOOD CHOLESTEROL INCREASED
     Dosage: 1 TABLET EVERY DAY BY MOUTH
     Route: 048
     Dates: start: 20100101, end: 20110801
  2. MELOXICAM [Suspect]
     Indication: ARTHRITIS
     Dosage: 1 TABLET EVERY DAY BY MOUTH
     Route: 048
  3. TRAMADOL HCL [Suspect]
     Indication: PAIN
     Dosage: 1 TABLET EVERY DAY BY MOUTH
     Route: 048
     Dates: start: 20100101, end: 20110801
  4. ZOCOR [Suspect]
     Indication: BLOOD CHOLESTEROL INCREASED
     Dosage: 1 TABLET A DAY EVERY DAY BY MOUTH
     Route: 048
     Dates: start: 20101001, end: 20110801

REACTIONS (5)
  - MYOSITIS [None]
  - MYALGIA [None]
  - HEMIPARESIS [None]
  - URINE FLOW DECREASED [None]
  - TENDERNESS [None]
